FAERS Safety Report 20127893 (Version 1)
Quarter: 2021Q4

REPORT INFORMATION
  Report Type: Spontaneous
  Country: IT (occurrence: IT)
  Receive Date: 20211129
  Receipt Date: 20211129
  Transmission Date: 20220303
  Serious: Yes (Life-Threatening, Other)
  Sender: FDA-Public Use
  Company Number: IT-TAKEDA-2021TJP122737

PATIENT
  Age: 54 Year
  Sex: Male

DRUGS (3)
  1. PROPOFOL [Concomitant]
     Active Substance: PROPOFOL
     Indication: Premedication
     Dosage: 150 MILLIGRAM
     Route: 042
  2. FENTANYL [Concomitant]
     Active Substance: FENTANYL
     Indication: Premedication
     Dosage: 50 MICROGRAM
     Route: 042
  3. ATRACURIUM [Concomitant]
     Active Substance: ATRACURIUM
     Indication: Premedication
     Dosage: 35 MILLIGRAM
     Route: 042

REACTIONS (2)
  - Drug hypersensitivity [Recovered/Resolved]
  - Kounis syndrome [Recovered/Resolved]
